FAERS Safety Report 8846619 (Version 1)
Quarter: 2012Q4

REPORT INFORMATION
  Report Type: Report from Study
  Country: DE (occurrence: DE)
  Receive Date: 20121017
  Receipt Date: 20121017
  Transmission Date: 20130627
  Serious: Yes (Hospitalization)
  Sender: FDA-Public Use
  Company Number: DE-BAXTER-2012BAX019649

PATIENT
  Age: 62 Year
  Sex: Female

DRUGS (7)
  1. ENDOXAN 1G [Suspect]
     Indication: NON-HODGKIN^S LYMPHOMA
     Route: 065
  2. RITUXIMAB [Suspect]
     Indication: NON-HODGKIN^S LYMPHOMA
     Route: 042
  3. RITUXIMAB [Suspect]
     Route: 042
     Dates: start: 20120202
  4. DOXORUBICIN [Suspect]
     Indication: NON-HODGKIN^S LYMPHOMA
     Route: 065
  5. VINCRISTINE [Suspect]
     Indication: NON-HODGKIN^S LYMPHOMA
     Route: 065
  6. PREDNISONE [Suspect]
     Indication: NON-HODGKIN^S LYMPHOMA
     Route: 065
  7. ROXITHROMYCIN [Suspect]
     Indication: PNEUMONIA
     Route: 065
     Dates: start: 20120306

REACTIONS (3)
  - Pneumonia [Not Recovered/Not Resolved]
  - Hypersensitivity [Not Recovered/Not Resolved]
  - Non-Hodgkin^s lymphoma [Unknown]
